FAERS Safety Report 4346260-7 (Version None)
Quarter: 2004Q2

REPORT INFORMATION
  Report Type: 
  Country: None (occurrence: None)
  Receive Date: 20040423
  Receipt Date: 20040423
  Transmission Date: 20050107
  Serious: Yes (Hospitalization)
  Sender: FDA-Public Use
  Company Number: None

PATIENT
  Age: 34 Year
  Sex: Male
  Weight: 92.6 kg

DRUGS (6)
  1. CRESTOR [Suspect]
     Indication: HYPERLIPIDAEMIA
     Dosage: 20 MG, QHS, PO
     Route: 048
     Dates: start: 20031201, end: 20040305
  2. TOPIRMATE [Concomitant]
  3. METFORMIN HCL [Concomitant]
  4. DIVALPROEX SODIUM [Concomitant]
  5. CLOZAPINE [Concomitant]
  6. BUPROPION XL [Concomitant]

REACTIONS (1)
  - RHABDOMYOLYSIS [None]
